FAERS Safety Report 25326467 (Version 2)
Quarter: 2025Q2

REPORT INFORMATION
  Report Type: Spontaneous
  Country: IT (occurrence: IT)
  Receive Date: 20250516
  Receipt Date: 20250602
  Transmission Date: 20250716
  Serious: Yes (Other)
  Sender: ABBVIE
  Company Number: IT-ABBVIE-6281224

PATIENT
  Age: 76 Year
  Sex: Male

DRUGS (1)
  1. RINVOQ [Suspect]
     Active Substance: UPADACITINIB
     Indication: Dermatitis atopic
     Route: 048

REACTIONS (1)
  - Transient ischaemic attack [Unknown]
